FAERS Safety Report 13180335 (Version 1)
Quarter: 2017Q1

REPORT INFORMATION
  Report Type: Spontaneous
  Country: US (occurrence: US)
  Receive Date: 20170202
  Receipt Date: 20170202
  Transmission Date: 20170428
  Serious: Yes (Hospitalization, Other)
  Sender: FDA-Public Use
  Company Number: US-AMGEN-USASP2017014351

PATIENT
  Sex: Female

DRUGS (1)
  1. ENBREL [Suspect]
     Active Substance: ETANERCEPT
     Indication: RHEUMATOID ARTHRITIS
     Dosage: UNK UNK, QWK ON FRIDAYS
     Route: 065

REACTIONS (5)
  - Limb injury [Unknown]
  - Sinus disorder [Recovering/Resolving]
  - Cellulitis [Unknown]
  - Nasopharyngitis [Recovering/Resolving]
  - Dyspnoea [Recovering/Resolving]

NARRATIVE: CASE EVENT DATE: 2015
